FAERS Safety Report 6969801-X (Version None)
Quarter: 2010Q3

REPORT INFORMATION
  Report Type: 
  Country: None (occurrence: None)
  Receive Date: 20100908
  Receipt Date: 20100831
  Transmission Date: 20110219
  Serious: No
  Sender: FDA-Public Use
  Company Number: US-BIOGENIDEC-2010BI030537

PATIENT
  Sex: Female

DRUGS (3)
  1. TYSABRI [Suspect]
     Indication: MULTIPLE SCLEROSIS
     Route: 042
     Dates: start: 20050103, end: 20050203
  2. TYSABRI [Suspect]
     Route: 042
     Dates: start: 20061212
  3. AVONEX [Concomitant]
     Indication: MULTIPLE SCLEROSIS
     Route: 030
     Dates: start: 20050113, end: 20060803

REACTIONS (4)
  - FATIGUE [None]
  - GAIT DISTURBANCE [None]
  - TREMOR [None]
  - WEIGHT INCREASED [None]
